FAERS Safety Report 23907693 (Version 1)
Quarter: 2024Q2

REPORT INFORMATION
  Report Type: Spontaneous
  Country: CN (occurrence: CN)
  Receive Date: 20240528
  Receipt Date: 20240528
  Transmission Date: 20240716
  Serious: Yes (Hospitalization, Other)
  Sender: FDA-Public Use
  Company Number: CN-AJANTA-2024AJA00094

PATIENT
  Age: 67 Year
  Sex: Female

DRUGS (18)
  1. DULOXETINE [Suspect]
     Active Substance: DULOXETINE
     Indication: Depression
     Dosage: MAXIMUM DAILY DOSE OF 60 MG
  2. DULOXETINE [Suspect]
     Active Substance: DULOXETINE
  3. DULOXETINE [Suspect]
     Active Substance: DULOXETINE
  4. DULOXETINE [Suspect]
     Active Substance: DULOXETINE
  5. DULOXETINE [Suspect]
     Active Substance: DULOXETINE
  6. DULOXETINE [Suspect]
     Active Substance: DULOXETINE
  7. DULOXETINE [Suspect]
     Active Substance: DULOXETINE
  8. ESCITALOPRAM [Concomitant]
     Active Substance: ESCITALOPRAM OXALATE
     Indication: Depression
     Dosage: MAXIMUM DAILY DOSE OF 20  MG
  9. ESCITALOPRAM [Concomitant]
     Active Substance: ESCITALOPRAM OXALATE
  10. ESCITALOPRAM [Concomitant]
     Active Substance: ESCITALOPRAM OXALATE
  11. CITALOPRAM [Concomitant]
     Active Substance: CITALOPRAM\CITALOPRAM HYDROBROMIDE
     Indication: Depression
     Dosage: MAXIMUM DAILY DOSE OF 20 MG
  12. VENLAFAXINE [Concomitant]
     Active Substance: VENLAFAXINE HYDROCHLORIDE
     Indication: Depression
  13. BUPROPION [Concomitant]
     Active Substance: BUPROPION
     Indication: Depression
  14. TRAZODONE [Concomitant]
     Active Substance: TRAZODONE HYDROCHLORIDE
     Indication: Depression
  15. TRAZODONE [Concomitant]
     Active Substance: TRAZODONE HYDROCHLORIDE
  16. CLONAZEPAM [Concomitant]
     Active Substance: CLONAZEPAM
  17. CLONAZEPAM [Concomitant]
     Active Substance: CLONAZEPAM
  18. CLONAZEPAM [Concomitant]
     Active Substance: CLONAZEPAM

REACTIONS (2)
  - Restless arm syndrome [Recovered/Resolved]
  - Restless legs syndrome [Recovered/Resolved]
